FAERS Safety Report 23855328 (Version 2)
Quarter: 2024Q3

REPORT INFORMATION
  Report Type: Spontaneous
  Country: US (occurrence: US)
  Receive Date: 20240514
  Receipt Date: 20240723
  Transmission Date: 20241016
  Serious: No
  Sender: SANOFI AVENTIS
  Company Number: US-SA-SAC20240508000856

PATIENT
  Age: 49 Year
  Sex: Female

DRUGS (1)
  1. DUPIXENT [Suspect]
     Active Substance: DUPILUMAB
     Indication: Dermatitis atopic
     Dosage: 300 MG, QOW
     Route: 058

REACTIONS (7)
  - Pain [Unknown]
  - Blister [Unknown]
  - Bone pain [Unknown]
  - Gait disturbance [Unknown]
  - Pyrexia [Unknown]
  - Pain in extremity [Unknown]
  - Rash erythematous [Unknown]
